FAERS Safety Report 16563589 (Version 1)
Quarter: 2019Q3

REPORT INFORMATION
  Report Type: Spontaneous
  Country: US (occurrence: US)
  Receive Date: 20190712
  Receipt Date: 20190712
  Transmission Date: 20191004
  Serious: No
  Sender: FDA-Public Use
  Company Number: US-CIPLA LTD.-2019US01827

PATIENT

DRUGS (2)
  1. ALBENDAZOLE. [Suspect]
     Active Substance: ALBENDAZOLE
     Dosage: 200 MILLIGRAM, BID, (PRODUCT FORM WALMART PHARMACY)
     Route: 048
  2. ALBENDAZOLE. [Suspect]
     Active Substance: ALBENDAZOLE
     Indication: PRODUCT USED FOR UNKNOWN INDICATION
     Dosage: 200 MILLIGRAM, BID, (PRODUCT FORM WALGREENS PHARMACY)
     Route: 048

REACTIONS (1)
  - Drug ineffective [Unknown]
